APPROVED DRUG PRODUCT: OHTUVAYRE
Active Ingredient: ENSIFENTRINE
Strength: 3MG/2.5ML
Dosage Form/Route: SUSPENSION;INHALATION
Application: N217389 | Product #001
Applicant: VERONA PHARMA INC
Approved: Jun 26, 2024 | RLD: Yes | RS: Yes | Type: RX

PATENTS:
Patent 9956171 | Expires: Sep 15, 2035
Patent 9062047 | Expires: Aug 21, 2031
Patent 12251384 | Expires: Jun 25, 2044
Patent 12409180 | Expires: Feb 20, 2043
Patent 10945950 | Expires: Sep 15, 2035

EXCLUSIVITY:
Code: NCE | Date: Jun 26, 2029